FAERS Safety Report 10723079 (Version 1)
Quarter: 2015Q1

REPORT INFORMATION
  Report Type: Spontaneous
  Country: TN (occurrence: None)
  Receive Date: 20150114
  Receipt Date: 20150114
  Transmission Date: 20150721
  Serious: Yes (Life-Threatening)
  Sender: FDA-Public Use
  Company Number: FK201500037

PATIENT
  Sex: Female

DRUGS (8)
  1. PYRIAZINAMIDE(PYRAZINAMIDE) [Concomitant]
  2. STREPTOMYCIN(STREPTOMYCIN) [Concomitant]
  3. CIPROFLOXACIN(CIPROFLOXACIN) [Concomitant]
  4. ETHAMBUTOL(ETHAMBUTOL) [Concomitant]
  5. RIFAMPIN (MANUFACTURER UNKNON) (RIFAMPIN)(RIFAMPIN) [Suspect]
     Active Substance: RIFAMPIN
     Indication: TUBERCULOSIS
     Dosage: DOSE 2. 740 MG, UKNOWN
  6. RIFAMPIN (MANUFACTURER UNKNON) (RIFAMPIN)(RIFAMPIN) [Suspect]
     Active Substance: RIFAMPIN
     Indication: IMMUNE TOLERANCE INDUCTION
     Dosage: DOSE 2. 740 MG, UKNOWN
  7. ISNONIAZID(ISONIAZID) [Concomitant]
  8. ETHIONAMIDE(ETHIONAMIDE) [Concomitant]

REACTIONS (4)
  - Conjunctival hyperaemia [None]
  - Arthralgia [None]
  - Anaphylactic shock [None]
  - Urticaria [None]
